FAERS Safety Report 5808430-8 (Version None)
Quarter: 2008Q3

REPORT INFORMATION
  Report Type: 
  Country: None (occurrence: None)
  Receive Date: 20080714
  Receipt Date: 20080703
  Transmission Date: 20090109
  Serious: Yes (Other)
  Sender: FDA-Public Use
  Company Number: US-JNJFOC-20080700952

PATIENT
  Sex: Male
  Weight: 83.92 kg

DRUGS (6)
  1. FENTANYL TRANSDERMAL SYSTEM [Suspect]
     Indication: POST POLIO SYNDROME
     Route: 062
  2. FENTANYL TRANSDERMAL SYSTEM [Suspect]
     Route: 062
  3. FENTANYL TRANSDERMAL SYSTEM [Suspect]
     Indication: POST POLIO SYNDROME
     Route: 062
  4. TRAZODONE HCL [Concomitant]
     Indication: SLEEP DISORDER
     Route: 048
  5. NEURONTIN [Concomitant]
     Indication: PAIN
     Route: 048
  6. PAXIL [Concomitant]
     Indication: ANXIETY
     Route: 048

REACTIONS (5)
  - BIPOLAR DISORDER [None]
  - GASTROOESOPHAGEAL REFLUX DISEASE [None]
  - INAPPROPRIATE SCHEDULE OF DRUG ADMINISTRATION [None]
  - NASOPHARYNGITIS [None]
  - OROPHARYNGEAL PAIN [None]
